FAERS Safety Report 15585738 (Version 2)
Quarter: 2018Q4

REPORT INFORMATION
  Report Type: Report from Study
  Country: None (occurrence: US)
  Receive Date: 20181105
  Receipt Date: 20181213
  Transmission Date: 20190205
  Serious: Yes (Hospitalization, Other)
  Sender: FDA-Public Use
  Company Number: US-ABBVIE-18K-163-2537763-00

PATIENT
  Age: 62 Year
  Sex: Female
  Weight: 97.61 kg

DRUGS (6)
  1. PARICALCITOL. [Concomitant]
     Active Substance: PARICALCITOL
     Indication: BONE DISORDER
  2. SODIUM BICARBONATE. [Concomitant]
     Active Substance: SODIUM BICARBONATE
     Indication: RENAL DISORDER
  3. CARVEDILOL. [Concomitant]
     Active Substance: CARVEDILOL
     Indication: BLOOD PRESSURE MEASUREMENT
  4. HUMIRA [Suspect]
     Active Substance: ADALIMUMAB
     Indication: PSORIATIC ARTHROPATHY
     Route: 058
     Dates: start: 2013
  5. METHOTREXATE. [Suspect]
     Active Substance: METHOTREXATE
     Indication: PRODUCT USED FOR UNKNOWN INDICATION
     Route: 065
  6. VITAMINS SUPPLEMENTS [Concomitant]
     Indication: PRODUCT USED FOR UNKNOWN INDICATION

REACTIONS (3)
  - Blood potassium increased [Not Recovered/Not Resolved]
  - Renal impairment [Recovered/Resolved]
  - Blood phosphorus increased [Not Recovered/Not Resolved]

NARRATIVE: CASE EVENT DATE: 201808
